FAERS Safety Report 18744887 (Version 1)
Quarter: 2021Q1

REPORT INFORMATION
  Report Type: Spontaneous
  Country: US (occurrence: US)
  Receive Date: 20210115
  Receipt Date: 20210115
  Transmission Date: 20210419
  Serious: Yes (Hospitalization, Other)
  Sender: FDA-Public Use
  Company Number: US-AUROBINDO-AUR-APL-2021-000902

PATIENT
  Age: 30 Year
  Sex: Female

DRUGS (6)
  1. TRAZODONE [Suspect]
     Active Substance: TRAZODONE HYDROCHLORIDE
     Dosage: 1200 MILLIGRAM
     Route: 065
  2. QUETIAPINE. [Suspect]
     Active Substance: QUETIAPINE
     Indication: PRODUCT USED FOR UNKNOWN INDICATION
  3. QUETIAPINE. [Suspect]
     Active Substance: QUETIAPINE
     Dosage: 1200 MILLIGRAM
     Route: 065
  4. VENLAFAXINE [Suspect]
     Active Substance: VENLAFAXINE HYDROCHLORIDE
     Indication: PRODUCT USED FOR UNKNOWN INDICATION
  5. TRAZODONE [Suspect]
     Active Substance: TRAZODONE HYDROCHLORIDE
     Indication: PRODUCT USED FOR UNKNOWN INDICATION
     Dosage: UNK
     Route: 065
  6. VENLAFAXINE [Suspect]
     Active Substance: VENLAFAXINE HYDROCHLORIDE

REACTIONS (9)
  - Intentional overdose [Recovered/Resolved]
  - Palpitations [Recovered/Resolved]
  - Asthenia [Unknown]
  - Weight decreased [Unknown]
  - Lymphadenopathy [Unknown]
  - Electrocardiogram QT prolonged [Recovered/Resolved]
  - Hypotension [Recovered/Resolved]
  - Abdominal pain [Unknown]
  - Sedation [Recovered/Resolved]
